FAERS Safety Report 6367782-3 (Version None)
Quarter: 2009Q3

REPORT INFORMATION
  Report Type: 
  Country: None (occurrence: None)
  Receive Date: 20090921
  Receipt Date: 20090909
  Transmission Date: 20100115
  Serious: Yes (Other)
  Sender: FDA-Public Use
  Company Number: US-WYE-H10913409

PATIENT
  Sex: Male

DRUGS (6)
  1. PRISTIQ [Suspect]
     Indication: DEPRESSION
     Route: 048
     Dates: start: 20090816, end: 20090906
  2. PRISTIQ [Suspect]
     Indication: POST-TRAUMATIC STRESS DISORDER
  3. MIRAPEX ^PHARMACIA-UPJOHN^ [Concomitant]
     Dosage: UNKNOWN DOSE AT BEDTIME
  4. TRAZODONE [Concomitant]
     Dosage: UNKNOWN DOSE AT BEDTIME
  5. GABAPENTIN [Concomitant]
     Dosage: UNKNOWN DOSE TWICE A DAY
  6. KLONOPIN [Concomitant]
     Dosage: UNKNOWN DOSE TWICE A DAY

REACTIONS (8)
  - DECREASED APPETITE [None]
  - DIARRHOEA [None]
  - DIPLOPIA [None]
  - ERECTILE DYSFUNCTION [None]
  - EYE PAIN [None]
  - HEADACHE [None]
  - NAUSEA [None]
  - NERVE INJURY [None]
